FAERS Safety Report 9129695 (Version 1)
Quarter: 2013Q1

REPORT INFORMATION
  Report Type: Spontaneous
  Country: FR (occurrence: FR)
  Receive Date: 20130228
  Receipt Date: 20130228
  Transmission Date: 20140127
  Serious: Yes (Other)
  Sender: FDA-Public Use
  Company Number: FR-PFIZER INC-2013067304

PATIENT
  Age: 66 Year
  Sex: Male

DRUGS (4)
  1. SUTENT [Suspect]
     Indication: RENAL CANCER METASTATIC
     Dosage: 50 MG DAILY
     Route: 048
     Dates: start: 200609, end: 200703
  2. SUTENT [Suspect]
     Dosage: 37.5 MG DAILY
     Route: 048
     Dates: start: 200704, end: 201010
  3. SUTENT [Suspect]
     Dosage: 50 MG DAILY
     Route: 048
     Dates: start: 201011, end: 20121212
  4. TAREG [Concomitant]
     Indication: HYPERTENSION
     Dosage: UNK
     Dates: start: 200611

REACTIONS (3)
  - Coronary artery disease [Not Recovered/Not Resolved]
  - Coronary artery stenosis [Not Recovered/Not Resolved]
  - Angina pectoris [Not Recovered/Not Resolved]
